FAERS Safety Report 15697956 (Version 6)
Quarter: 2019Q4

REPORT INFORMATION
  Report Type: Report from Study
  Country: US (occurrence: US)
  Receive Date: 20181207
  Receipt Date: 20191002
  Transmission Date: 20200122
  Serious: Yes (Other)
  Sender: FDA-Public Use
  Company Number: PHEH2018US050562

PATIENT
  Age: 17 Year
  Sex: Female

DRUGS (2)
  1. GILENYA [Suspect]
     Active Substance: FINGOLIMOD HYDROCHLORIDE
     Indication: MULTIPLE SCLEROSIS
     Dosage: 0.5 MG, QD
     Route: 048
     Dates: start: 20180910
  2. GILENYA [Suspect]
     Active Substance: FINGOLIMOD HYDROCHLORIDE
     Dosage: 0.5 MG, QD
     Route: 048
     Dates: start: 20180928

REACTIONS (11)
  - Fatigue [Not Recovered/Not Resolved]
  - Wound [Unknown]
  - Infection [Recovered/Resolved]
  - Vomiting [Unknown]
  - Nausea [Unknown]
  - Paranasal sinus hypersecretion [Unknown]
  - Behcet^s syndrome [Unknown]
  - Sinusitis [Recovered/Resolved]
  - Disturbance in attention [Unknown]
  - Multiple sclerosis relapse [Unknown]
  - Visual impairment [Recovered/Resolved]

NARRATIVE: CASE EVENT DATE: 20190420
